FAERS Safety Report 16740857 (Version 62)
Quarter: 2022Q3

REPORT INFORMATION
  Report Type: Spontaneous
  Country: US (occurrence: US)
  Receive Date: 20190826
  Receipt Date: 20220824
  Transmission Date: 20221027
  Serious: Yes (Hospitalization, Other)
  Sender: FDA-Public Use
  Company Number: US-PFIZER INC-2019363980

PATIENT
  Age: 65 Year
  Sex: Female
  Weight: 59.87 kg

DRUGS (13)
  1. PREMARIN [Suspect]
     Active Substance: ESTROGENS, CONJUGATED
     Indication: Vulvovaginal dryness
     Dosage: 2 G, 2X/WEEK
     Route: 067
  2. PREMARIN [Suspect]
     Active Substance: ESTROGENS, CONJUGATED
     Indication: Vaginal infection
     Dosage: 1 G, DAILY (INSERT 0.5 APPLICATOR(S)FUL EVERY DAY)
     Route: 067
  3. PREMARIN [Suspect]
     Active Substance: ESTROGENS, CONJUGATED
     Dosage: UNK, DAILY
     Route: 067
  4. PREMARIN [Suspect]
     Active Substance: ESTROGENS, CONJUGATED
     Dosage: 2 G, 3X/WEEK
  5. PREMARIN [Suspect]
     Active Substance: ESTROGENS, CONJUGATED
     Dosage: 2.5 G, 3X/WEEK
     Dates: start: 2014
  6. DIFLUCAN [Suspect]
     Active Substance: FLUCONAZOLE
     Indication: Fungal infection
     Dosage: 50 MG, 1X/DAY
     Route: 048
  7. DIFLUCAN [Suspect]
     Active Substance: FLUCONAZOLE
     Dosage: 100 MG, 1X/DAY
     Route: 048
  8. ACCUPRIL [Suspect]
     Active Substance: QUINAPRIL HYDROCHLORIDE
     Indication: Blood pressure abnormal
     Dosage: UNK
     Dates: start: 2010
  9. ACCUPRIL [Suspect]
     Active Substance: QUINAPRIL HYDROCHLORIDE
     Indication: Labile hypertension
     Dosage: 10 MG
     Dates: start: 2014
  10. ACCUPRIL [Suspect]
     Active Substance: QUINAPRIL HYDROCHLORIDE
     Dosage: 15 MG
  11. ACCUPRIL [Suspect]
     Active Substance: QUINAPRIL HYDROCHLORIDE
     Dosage: 20 MG
  12. ALDACTONE [Suspect]
     Active Substance: SPIRONOLACTONE
     Indication: Polyuria
     Dosage: 25 MG, 1X/DAY
     Route: 048
  13. ALDACTONE [Suspect]
     Active Substance: SPIRONOLACTONE
     Indication: Blood pressure abnormal

REACTIONS (37)
  - Blood pressure inadequately controlled [Unknown]
  - Illness [Unknown]
  - Urinary tract infection bacterial [Unknown]
  - Stress [Unknown]
  - Knee operation [Unknown]
  - Neurogenic bladder [Unknown]
  - Cerebrovascular accident [Unknown]
  - Suicidal ideation [Unknown]
  - Back disorder [Unknown]
  - Joint injury [Unknown]
  - Product dispensing error [Unknown]
  - Off label use [Unknown]
  - Product use issue [Unknown]
  - Viral infection [Unknown]
  - Abdominal pain upper [Unknown]
  - Fall [Unknown]
  - Oropharyngeal pain [Unknown]
  - Movement disorder [Not Recovered/Not Resolved]
  - Fatigue [Not Recovered/Not Resolved]
  - Influenza [Unknown]
  - Headache [Not Recovered/Not Resolved]
  - Insomnia [Not Recovered/Not Resolved]
  - Snoring [Unknown]
  - Blood cholesterol increased [Unknown]
  - Skin discolouration [Unknown]
  - Malaise [Not Recovered/Not Resolved]
  - Hypersensitivity [Unknown]
  - Self-injurious ideation [Unknown]
  - Feeling abnormal [Unknown]
  - Migraine [Unknown]
  - Limb discomfort [Unknown]
  - Chest pain [Unknown]
  - Intervertebral disc protrusion [Unknown]
  - Synovial cyst [Unknown]
  - Back pain [Unknown]
  - Nightmare [Unknown]
  - Vomiting [Unknown]
